FAERS Safety Report 23230045 (Version 1)
Quarter: 2023Q4

REPORT INFORMATION
  Report Type: Spontaneous
  Country: US (occurrence: US)
  Receive Date: 20231127
  Receipt Date: 20231127
  Transmission Date: 20240110
  Serious: Yes (Other)
  Sender: FDA-Public Use
  Company Number: US-UCBSA-2023045619

PATIENT
  Age: 85 Year
  Sex: Female

DRUGS (1)
  1. CIMZIA [Suspect]
     Active Substance: CERTOLIZUMAB PEGOL
     Indication: Rheumatoid arthritis
     Dosage: 400 MILLIGRAM, UNK
     Route: 058
     Dates: start: 20230823, end: 20230823

REACTIONS (3)
  - Neoplasm malignant [Not Recovered/Not Resolved]
  - Pain in extremity [Not Recovered/Not Resolved]
  - Wheelchair user [Not Recovered/Not Resolved]

NARRATIVE: CASE EVENT DATE: 20230823
